FAERS Safety Report 4663311-0 (Version None)
Quarter: 2005Q2

REPORT INFORMATION
  Report Type: 
  Country: None (occurrence: None)
  Receive Date: 20050517
  Receipt Date: 20050509
  Transmission Date: 20051028
  Serious: Yes (Death, Hospitalization)
  Sender: FDA-Public Use
  Company Number: US-BOEHRINGER INGELHEIM PHARMACEUTICALS, INC.-2005-BP-07701BP

PATIENT
  Sex: Male

DRUGS (1)
  1. ATROVENT [Suspect]
     Indication: ASTHMA
     Route: 055
     Dates: end: 20010101

REACTIONS (3)
  - ABDOMINAL DISCOMFORT [None]
  - GASTROINTESTINAL PAIN [None]
  - INTESTINAL ISCHAEMIA [None]
